FAERS Safety Report 4379518-6 (Version None)
Quarter: 2004Q2

REPORT INFORMATION
  Report Type: 
  Country: None (occurrence: None)
  Receive Date: 20040610
  Receipt Date: 20040528
  Transmission Date: 20050107
  Serious: Yes (Hospitalization)
  Sender: FDA-Public Use
  Company Number: TEST00204001537

PATIENT
  Age: 62 Year
  Sex: Male
  Weight: 90.7194 kg

DRUGS (6)
  1. ANDROGEL [Suspect]
     Indication: MULTIPLE SCLEROSIS RELAPSE
     Dosage: 10 G QD TD
     Route: 062
     Dates: start: 20040122
  2. NORVASC [Concomitant]
  3. DIOVAN [Concomitant]
  4. HYDROCHLOROTHIAZIDE [Concomitant]
  5. CRESTOR (ROSUVASTATIN) [Concomitant]
  6. TOPROL-XL [Concomitant]

REACTIONS (2)
  - CHEST PAIN [None]
  - STENT PLACEMENT [None]
